FAERS Safety Report 9947106 (Version 1)
Quarter: 2014Q1

REPORT INFORMATION
  Report Type: Report from Study
  Country: US (occurrence: US)
  Receive Date: 20140303
  Receipt Date: 20140303
  Transmission Date: 20141002
  Serious: No
  Sender: FDA-Public Use
  Company Number: US-ABBVIE-13P-163-1063683-00

PATIENT
  Age: 18 Year
  Sex: Female

DRUGS (3)
  1. HUMIRA [Suspect]
     Indication: CROHN^S DISEASE
     Dosage: SECOND LOADING DOSE
     Dates: start: 20130219
  2. LEXAPRO [Concomitant]
     Indication: ANXIETY
  3. ORTHO TRI-CYCLEN LO [Concomitant]
     Indication: CONTRACEPTION

REACTIONS (3)
  - Cough [Recovering/Resolving]
  - Respiratory disorder [Recovering/Resolving]
  - Bronchitis [Recovering/Resolving]
